FAERS Safety Report 8504544-2 (Version None)
Quarter: 2012Q3

REPORT INFORMATION
  Report Type: 
  Country: None (occurrence: None)
  Receive Date: 20120711
  Receipt Date: 20120709
  Transmission Date: 20120928
  Serious: Yes (Hospitalization)
  Sender: FDA-Public Use
  Company Number: US-ROCHE-1085805

PATIENT
  Sex: Female
  Weight: 128.03 kg

DRUGS (7)
  1. SYNTHROID [Concomitant]
  2. PATADAY [Concomitant]
  3. XOLAIR [Suspect]
     Indication: ASTHMA
     Route: 058
     Dates: start: 20110919, end: 20120702
  4. COMBIVENT [Concomitant]
  5. XANAX [Concomitant]
  6. SYMBICORT [Concomitant]
  7. SINGULAIR [Concomitant]

REACTIONS (2)
  - DYSPNOEA [None]
  - WHEEZING [None]
